FAERS Safety Report 22096558 (Version 3)
Quarter: 2024Q2

REPORT INFORMATION
  Report Type: Spontaneous
  Country: CN (occurrence: CN)
  Receive Date: 20230315
  Receipt Date: 20240509
  Transmission Date: 20240716
  Serious: Yes (Hospitalization, Other)
  Sender: FDA-Public Use
  Company Number: None

PATIENT
  Age: 61 Year
  Sex: Male
  Weight: 67 kg

DRUGS (4)
  1. MYCOPHENOLATE MOFETIL [Suspect]
     Active Substance: MYCOPHENOLATE MOFETIL
     Indication: Immunosuppressant drug therapy
     Dosage: 0.5 GRAM, BID
     Route: 065
  2. CYCLOSPORINE [Suspect]
     Active Substance: CYCLOSPORINE
     Indication: Immunosuppressant drug therapy
     Dosage: 100 MILLIGRAM, BID
     Route: 065
  3. NIFEDIPINE [Concomitant]
     Active Substance: NIFEDIPINE
     Indication: Hypertension
     Dosage: 20 MILLIGRAM, QD (PER NIGHT) (CONTROLLED-RELEASE TABLETS)
     Route: 065
  4. Synthetic human insulin [Concomitant]
     Indication: Type 2 diabetes mellitus
     Dosage: UNK, QD (EVERY 1 DAY)
     Route: 065

REACTIONS (2)
  - Clear cell renal cell carcinoma [Recovered/Resolved]
  - Papillary renal cell carcinoma [Recovered/Resolved]

NARRATIVE: CASE EVENT DATE: 20180101
